FAERS Safety Report 13181673 (Version 4)
Quarter: 2017Q3

REPORT INFORMATION
  Report Type: Spontaneous
  Country: ZA (occurrence: ZA)
  Receive Date: 20170202
  Receipt Date: 20170912
  Transmission Date: 20171127
  Serious: Yes (Death, Hospitalization, Other)
  Sender: FDA-Public Use
  Company Number: ZA-IPSEN BIOPHARMACEUTICALS, INC.-2017-00820

PATIENT
  Age: 67 Year
  Sex: Female

DRUGS (7)
  1. ENALAPRIL [Concomitant]
     Active Substance: ENALAPRIL
     Dates: start: 2002
  2. ATENOLOL. [Concomitant]
     Active Substance: ATENOLOL
     Dates: start: 2002
  3. SIMVASTATIN. [Concomitant]
     Active Substance: SIMVASTATIN
     Dates: start: 2002
  4. ASPIRIN. [Concomitant]
     Active Substance: ASPIRIN
     Dates: start: 2005
  5. AMLODIPINE [Concomitant]
     Active Substance: AMLODIPINE BESYLATE
     Dates: start: 2002
  6. HYDROCHLOROTHIAZIDE. [Concomitant]
     Active Substance: HYDROCHLOROTHIAZIDE
     Dates: start: 2002
  7. SOMATULINE [Suspect]
     Active Substance: LANREOTIDE ACETATE
     Indication: CARCINOID SYNDROME
     Dosage: 120 MG
     Route: 058
     Dates: start: 20121203

REACTIONS (11)
  - Diabetes mellitus [Fatal]
  - Fall [Unknown]
  - Hypotension [Unknown]
  - Femur fracture [Fatal]
  - Neoplasm progression [Fatal]
  - Renal impairment [Fatal]
  - Hypoglycaemia [Fatal]
  - Confusional state [Not Recovered/Not Resolved]
  - Renal tubular necrosis [Unknown]
  - Dehydration [Unknown]
  - Decubitus ulcer [Unknown]

NARRATIVE: CASE EVENT DATE: 201607
